FAERS Safety Report 6433031-0 (Version None)
Quarter: 2009Q4

REPORT INFORMATION
  Report Type: 
  Country: None (occurrence: None)
  Receive Date: 20091109
  Receipt Date: 20091028
  Transmission Date: 20100525
  Serious: Yes (Hospitalization)
  Sender: FDA-Public Use
  Company Number: CA-ELI_LILLY_AND_COMPANY-CA200910007618

PATIENT
  Age: 73 Year
  Sex: Female

DRUGS (7)
  1. FORTEO [Suspect]
     Indication: OSTEOPOROSIS
     Dosage: 20 UG, DAILY (1/D)
     Route: 058
     Dates: start: 20090929
  2. CALCIUM [Concomitant]
  3. VERAPAMIL [Concomitant]
     Dosage: 200 MG, DAILY (1/D)
  4. COZAAR [Concomitant]
  5. ASAPHEN [Concomitant]
  6. TAMOXIFEN [Concomitant]
  7. PANTOLOC                           /01263201/ [Concomitant]
     Dosage: UNK, AS NEEDED

REACTIONS (2)
  - PNEUMONIA [None]
  - PYREXIA [None]
